FAERS Safety Report 8840086 (Version 3)
Quarter: 2015Q2

REPORT INFORMATION
  Report Type: Report from Study
  Country: US (occurrence: US)
  Receive Date: 20121015
  Receipt Date: 20150630
  Transmission Date: 20150821
  Serious: Yes (Other)
  Sender: FDA-Public Use
  Company Number: US-ROCHE-CID000000002108082

PATIENT
  Sex: Female
  Weight: 81.81 kg

DRUGS (22)
  1. OXYCONTIN [Concomitant]
     Active Substance: OXYCODONE HYDROCHLORIDE
     Route: 065
  2. GEMZAR [Suspect]
     Active Substance: GEMCITABINE HYDROCHLORIDE
     Indication: PRODUCT USED FOR UNKNOWN INDICATION
     Route: 065
     Dates: start: 20070803, end: 20071012
  3. ALOXI [Concomitant]
     Active Substance: PALONOSETRON HYDROCHLORIDE
     Route: 042
  4. ABRAXANE [Concomitant]
     Active Substance: PACLITAXEL
     Route: 042
  5. AVASTIN [Suspect]
     Active Substance: BEVACIZUMAB
     Route: 042
     Dates: start: 200805, end: 200810
  6. CARBOPLATIN. [Suspect]
     Active Substance: CARBOPLATIN
     Indication: BREAST CANCER FEMALE
     Route: 065
     Dates: start: 200408, end: 20050121
  7. NAVELBINE [Suspect]
     Active Substance: VINORELBINE TARTRATE
     Indication: PRODUCT USED FOR UNKNOWN INDICATION
     Route: 065
     Dates: start: 20050101
  8. PEGFILGRASTIM [Concomitant]
     Active Substance: PEGFILGRASTIM
     Route: 065
  9. TAXOL [Concomitant]
     Active Substance: PACLITAXEL
     Route: 065
     Dates: start: 20001208, end: 200102
  10. ARANESP [Concomitant]
     Active Substance: DARBEPOETIN ALFA
  11. TAXOL [Concomitant]
     Active Substance: PACLITAXEL
     Route: 065
     Dates: start: 200605
  12. AUGMENTIN [Concomitant]
     Active Substance: AMOXICILLIN\CLAVULANATE POTASSIUM
  13. OXYCODONE [Concomitant]
     Active Substance: OXYCODONE
     Dosage: 4-6 TABLETS
     Route: 065
  14. NEOSPORIN (BACITRACIN/NEOMYCIN/POLYMYXIN B) [Concomitant]
     Indication: PAIN IN EXTREMITY
  15. ZOLOFT [Concomitant]
     Active Substance: SERTRALINE HYDROCHLORIDE
  16. XELODA [Suspect]
     Active Substance: CAPECITABINE
     Indication: BREAST CANCER FEMALE
     Route: 065
     Dates: start: 20040805, end: 20050121
  17. IXEMPRA [Suspect]
     Active Substance: IXABEPILONE
     Indication: PRODUCT USED FOR UNKNOWN INDICATION
     Route: 065
     Dates: start: 20080229, end: 20080502
  18. ABRAXANE [Concomitant]
     Active Substance: PACLITAXEL
     Route: 042
  19. AVASTIN [Suspect]
     Active Substance: BEVACIZUMAB
     Route: 042
     Dates: start: 200708, end: 200710
  20. BENADRYL [Concomitant]
     Active Substance: DIPHENHYDRAMINE HYDROCHLORIDE
     Route: 065
  21. LASIX [Concomitant]
     Active Substance: FUROSEMIDE
  22. AVASTIN [Suspect]
     Active Substance: BEVACIZUMAB
     Indication: BREAST CANCER FEMALE
     Route: 042
     Dates: start: 20060519, end: 200701

REACTIONS (20)
  - Erythema [Unknown]
  - Infection [Unknown]
  - Cellulitis [Unknown]
  - Skin ulcer [Recovered/Resolved]
  - Acute febrile neutrophilic dermatosis [Unknown]
  - Peripheral swelling [Unknown]
  - Pain in extremity [Unknown]
  - Subcutaneous abscess [Unknown]
  - Breast cancer metastatic [Unknown]
  - Excoriation [Unknown]
  - Off label use [Unknown]
  - Chest pain [Unknown]
  - Secretion discharge [Unknown]
  - Lymphoedema [Unknown]
  - Oedema peripheral [Unknown]
  - Fatigue [Unknown]
  - Adverse drug reaction [Unknown]
  - Wound [Unknown]
  - Lymphadenopathy [Unknown]
  - Ill-defined disorder [Unknown]
